FAERS Safety Report 22608453 (Version 1)
Quarter: 2023Q2

REPORT INFORMATION
  Report Type: Spontaneous
  Country: US (occurrence: US)
  Receive Date: 20230616
  Receipt Date: 20230616
  Transmission Date: 20230722
  Serious: No
  Sender: FDA-Public Use
  Company Number: US-TOLMAR, INC.-23US041226

PATIENT
  Sex: Male

DRUGS (2)
  1. KETOCONAZOLE [Suspect]
     Active Substance: KETOCONAZOLE
     Indication: Dandruff
     Dosage: 2 % PERCENT
     Dates: start: 202303, end: 2023
  2. UNSPECIFIED INGREDIENT [Concomitant]
     Active Substance: UNSPECIFIED INGREDIENT
     Indication: Product used for unknown indication
     Dosage: UNK
     Dates: start: 2023

REACTIONS (5)
  - Off label use [Unknown]
  - Dry skin [Recovered/Resolved]
  - Skin exfoliation [Recovered/Resolved]
  - Skin haemorrhage [Recovered/Resolved]
  - Pain of skin [Recovered/Resolved]

NARRATIVE: CASE EVENT DATE: 20230101
